FAERS Safety Report 14673106 (Version 1)
Quarter: 2018Q1

REPORT INFORMATION
  Report Type: Report from Study
  Country: None (occurrence: CH)
  Receive Date: 20180323
  Receipt Date: 20180323
  Transmission Date: 20180509
  Serious: Yes (Hospitalization)
  Sender: FDA-Public Use
  Company Number: CH-ABBVIE-18K-151-2288800-00

PATIENT
  Sex: Female

DRUGS (3)
  1. DUODOPA [Suspect]
     Active Substance: CARBIDOPA\LEVODOPA
     Indication: PARKINSON^S DISEASE
     Dosage: MORNING DOSE: 10.5ML?CONTINUOUS DOSE: 3.9ML/H?EXTRA DOSE: 1.5ML
     Route: 050
     Dates: start: 20170920, end: 20180307
  2. DUODOPA [Suspect]
     Active Substance: CARBIDOPA\LEVODOPA
     Dosage: MORNING DOSE: 10.5ML?CONTINUOUS DOSE: 3.8ML/H?EXTRA DOSE: 1.5ML
     Route: 050
     Dates: start: 20180307
  3. SINEMET [Concomitant]
     Active Substance: CARBIDOPA\LEVODOPA
     Indication: PRODUCT USED FOR UNKNOWN INDICATION
     Dosage: AT 10PM

REACTIONS (3)
  - Pneumonia [Unknown]
  - Myalgia [Unknown]
  - Dystonia [Unknown]
